FAERS Safety Report 4582542-1 (Version None)
Quarter: 2005Q1

REPORT INFORMATION
  Report Type: 
  Country: None (occurrence: None)
  Receive Date: 20050211
  Receipt Date: 20050211
  Transmission Date: 20050727
  Serious: Yes (Disabling, Other)
  Sender: FDA-Public Use
  Company Number: None

PATIENT
  Age: 47 Year
  Sex: Female
  Weight: 90.7194 kg

DRUGS (1)
  1. LEVAQUIN [Suspect]
     Indication: PNEUMONIA
     Dates: start: 20040601, end: 20040701

REACTIONS (10)
  - ANXIETY [None]
  - ARTHRALGIA [None]
  - DELUSION [None]
  - DEPRESSION [None]
  - DIARRHOEA [None]
  - EYE IRRITATION [None]
  - JOINT SWELLING [None]
  - MYALGIA [None]
  - RASH [None]
  - VISION BLURRED [None]
